FAERS Safety Report 9275722 (Version 1)
Quarter: 2013Q2

REPORT INFORMATION
  Report Type: Spontaneous
  Country: DE (occurrence: None)
  Receive Date: 20130401
  Receipt Date: 20130401
  Transmission Date: 20140414
  Serious: Yes (Hospitalization)
  Sender: FDA-Public Use
  Company Number: 2013VX000340

PATIENT
  Sex: Female

DRUGS (1)
  1. MESTINON [Suspect]
     Indication: MUSCULAR WEAKNESS

REACTIONS (2)
  - Breast enlargement [None]
  - Condition aggravated [None]
